FAERS Safety Report 23163446 (Version 3)
Quarter: 2025Q4

REPORT INFORMATION
  Report Type: Spontaneous
  Country: US (occurrence: US)
  Receive Date: 20231109
  Receipt Date: 20251124
  Transmission Date: 20260117
  Serious: No
  Sender: INSMED
  Company Number: US-INSMED, INC.-2022-03016-US

PATIENT
  Sex: Female

DRUGS (5)
  1. ARIKAYCE [Suspect]
     Active Substance: AMIKACIN
     Indication: Mycobacterial infection
     Dosage: 590 MILLIGRAM, QD
     Route: 055
     Dates: start: 20220923, end: 2022
  2. ARIKAYCE [Suspect]
     Active Substance: AMIKACIN
     Dosage: 590 MILLIGRAM, 5 TIMES PER WEEK
     Route: 055
     Dates: start: 20220923, end: 2024
  3. ARIKAYCE [Suspect]
     Active Substance: AMIKACIN
     Dosage: 590 MILLIGRAM, TIW
     Route: 055
  4. ARIKAYCE [Suspect]
     Active Substance: AMIKACIN
     Dosage: 590 MILLIGRAM, 5 TIMES PER WEEK
     Route: 055
  5. ARIKAYCE [Suspect]
     Active Substance: AMIKACIN
     Dosage: 590 MILLIGRAM, TIW (EVERY MONDAY, WEDNESDAY AND FRIDAY)
     Route: 055
     Dates: start: 2024

REACTIONS (14)
  - Feeling hot [Unknown]
  - Respiratory tract congestion [Unknown]
  - Renal disorder [Unknown]
  - Contusion [Not Recovered/Not Resolved]
  - Pain in extremity [Unknown]
  - Ear discomfort [Unknown]
  - Insomnia [Not Recovered/Not Resolved]
  - Illness [Unknown]
  - Fatigue [Unknown]
  - Off label use [Unknown]
  - Product dose omission issue [Unknown]
  - Intentional dose omission [Unknown]
  - Accidental underdose [Unknown]
  - Device issue [Unknown]

NARRATIVE: CASE EVENT DATE: 20220101
